FAERS Safety Report 12395771 (Version 1)
Quarter: 2016Q2

REPORT INFORMATION
  Report Type: Spontaneous
  Country: US (occurrence: US)
  Receive Date: 20160523
  Receipt Date: 20160523
  Transmission Date: 20160815
  Serious: No
  Sender: FDA-Public Use
  Company Number: US-BANPHARM-20154087

PATIENT
  Age: 58 Year
  Sex: Female
  Weight: 86.18 kg

DRUGS (3)
  1. LEVOTHYROXINE. [Concomitant]
     Active Substance: LEVOTHYROXINE
     Indication: HYPOTHYROIDISM
     Dosage: 1 DF, QD,
  2. LISIOPRIL [Concomitant]
     Indication: HYPERTENSION
     Dosage: 10MGM QD,
  3. MOTRIN IB [Suspect]
     Active Substance: IBUPROFEN
     Dosage: 2 DF, PRN,
     Route: 048
     Dates: start: 20150717

REACTIONS (2)
  - Flushing [Unknown]
  - Feeling abnormal [Unknown]

NARRATIVE: CASE EVENT DATE: 20150717
